FAERS Safety Report 7434317-3 (Version None)
Quarter: 2011Q2

REPORT INFORMATION
  Report Type: 
  Country: None (occurrence: None)
  Receive Date: 20110425
  Receipt Date: 20110420
  Transmission Date: 20111010
  Serious: Yes (Other)
  Sender: FDA-Public Use
  Company Number: US-PFIZER INC-2011086724

PATIENT
  Sex: Male

DRUGS (6)
  1. AZOPT [Concomitant]
     Dosage: UNK
  2. SUTENT [Suspect]
     Indication: RENAL CELL CARCINOMA
     Dosage: 50 MG, 1X/DAY
     Dates: start: 20110313
  3. ALLOPURINOL [Concomitant]
     Dosage: UNK
  4. METOPROLOL [Concomitant]
     Indication: BLOOD PRESSURE
     Dosage: UNK
  5. XALATAN [Concomitant]
     Dosage: UNK
  6. CRESTOR [Concomitant]
     Indication: BLOOD CHOLESTEROL INCREASED
     Dosage: UNK

REACTIONS (2)
  - FALL [None]
  - BLOOD GLUCOSE INCREASED [None]
